FAERS Safety Report 16381761 (Version 2)
Quarter: 2019Q3

REPORT INFORMATION
  Report Type: Spontaneous
  Country: BR (occurrence: BR)
  Receive Date: 20190603
  Receipt Date: 20190719
  Transmission Date: 20191004
  Serious: Yes (Death, Hospitalization)
  Sender: FDA-Public Use
  Company Number: BR-UCBSA-2019022323

PATIENT
  Age: 1 Year
  Sex: Male
  Weight: 9.8 kg

DRUGS (6)
  1. VIMPAT [Suspect]
     Active Substance: LACOSAMIDE
     Dosage: 7 MILLILITER, 2X/DAY (BID)
     Route: 048
     Dates: start: 20190518, end: 20190520
  2. VIMPAT [Suspect]
     Active Substance: LACOSAMIDE
     Dosage: 7 MILLILITER, 2X/DAY (BID)
     Route: 048
     Dates: start: 20190521
  3. CLOBAZAM. [Concomitant]
     Active Substance: CLOBAZAM
     Indication: EPILEPSY
     Dosage: UNK
     Route: 048
     Dates: start: 201805
  4. VIMPAT [Suspect]
     Active Substance: LACOSAMIDE
     Indication: EPILEPSY
     Dosage: UNK
     Route: 048
     Dates: start: 201901, end: 2019
  5. VALPROATO [Concomitant]
     Active Substance: VALPROATE SODIUM
     Indication: EPILEPSY
     Dosage: 200 MILLILITER, 2X/DAY (BID)
     Route: 048
     Dates: start: 201807
  6. VIMPAT [Suspect]
     Active Substance: LACOSAMIDE
     Dosage: 7 MILLILITER, 2X/DAY (BID)
     Route: 048
     Dates: start: 2019, end: 20190515

REACTIONS (4)
  - Bronchospasm [Recovering/Resolving]
  - Death [Fatal]
  - Pneumonia [Recovering/Resolving]
  - Off label use [Unknown]

NARRATIVE: CASE EVENT DATE: 2019
